FAERS Safety Report 11270638 (Version 1)
Quarter: 2015Q3

REPORT INFORMATION
  Report Type: Spontaneous
  Country: US (occurrence: US)
  Receive Date: 20150714
  Receipt Date: 20150714
  Transmission Date: 20151125
  Serious: No
  Sender: FDA-Public Use
  Company Number: US-FRESENIUS KABI-FK201503310

PATIENT
  Sex: Female

DRUGS (1)
  1. DEXAMETHASONE SODIUM PHOSPHATE INJECTION, USP [Suspect]
     Active Substance: DEXAMETHASONE SODIUM PHOSPHATE
     Indication: NEURALGIA
     Route: 065
     Dates: start: 20150707, end: 20150707

REACTIONS (1)
  - Ocular hyperaemia [Unknown]

NARRATIVE: CASE EVENT DATE: 20150707
